FAERS Safety Report 15665074 (Version 1)
Quarter: 2018Q4

REPORT INFORMATION
  Report Type: Spontaneous
  Country: DE (occurrence: DE)
  Receive Date: 20181128
  Receipt Date: 20181128
  Transmission Date: 20190205
  Serious: Yes (Death, Hospitalization, Other)
  Sender: FDA-Public Use
  Company Number: DE-IBIGEN-2018.05159

PATIENT
  Age: 78 Year
  Sex: Male

DRUGS (12)
  1. AMPICILLIN/SULBACTAM [Suspect]
     Active Substance: AMPICILLIN SODIUM\SULBACTAM SODIUM
     Indication: PNEUMONIA
     Dosage: UNK ()
     Dates: start: 20160101
  2. FORMOTEROL FUMARATE [Suspect]
     Active Substance: FORMOTEROL FUMARATE
     Indication: PNEUMONIA
     Dosage: 20 MG,QD
     Dates: start: 20160101
  3. DONEPEZIL. [Concomitant]
     Active Substance: DONEPEZIL
     Indication: DELIRIUM
     Dosage: UNK ()
  4. DRONABINOL. [Suspect]
     Active Substance: DRONABINOL
     Indication: DELIRIUM
     Dosage: 2.5 MG,QD
     Dates: start: 20160101
  5. LORAZEPAM. [Suspect]
     Active Substance: LORAZEPAM
     Indication: AGITATION
     Dosage: QD ()
     Dates: start: 20160101
  6. CARBAMAZEPINE. [Concomitant]
     Active Substance: CARBAMAZEPINE
     Indication: DEMENTIA WITH LEWY BODIES
     Dosage: UNK UNK,UNK ()
     Route: 065
  7. RIVASTIGMINE. [Concomitant]
     Active Substance: RIVASTIGMINE
     Indication: DELIRIUM
     Dosage: QD ()
  8. QUETIAPINE FUMARATE. [Suspect]
     Active Substance: QUETIAPINE FUMARATE
     Indication: AGGRESSION
     Dosage: 100 MG,QD
     Route: 048
     Dates: start: 20170101
  9. DEXTROMETHORPHAN HYDROBROMIDE. [Suspect]
     Active Substance: DEXTROMETHORPHAN HYDROBROMIDE
     Indication: DELIRIUM
     Dosage: 40 MG, DIVIDED INTO 2 DOSAGES
     Route: 065
     Dates: start: 2017
  10. PAROXETINE HYDROCHLORIDE. [Suspect]
     Active Substance: PAROXETINE HYDROCHLORIDE
     Indication: AGITATION
     Dosage: 10 MG,QD
     Route: 065
     Dates: start: 20170101
  11. TIOTROPIUM BROMIDE [Suspect]
     Active Substance: TIOTROPIUM BROMIDE
     Indication: PNEUMONIA
     Dosage: UNK ()
     Dates: start: 20160101
  12. FLUPENTIXOL [Suspect]
     Active Substance: FLUPENTIXOL
     Indication: HANGOVER
     Dosage: UNK UNK,UNK ()
     Route: 048

REACTIONS (13)
  - Condition aggravated [Fatal]
  - Delirium [Fatal]
  - Aggression [Fatal]
  - Rebound effect [Fatal]
  - Fatigue [Fatal]
  - Agitation [Fatal]
  - Paradoxical drug reaction [Fatal]
  - Completed suicide [Fatal]
  - Sleep disorder [Fatal]
  - Off label use [Fatal]
  - Hangover [Fatal]
  - Paranoia [Fatal]
  - Withdrawal syndrome [Fatal]

NARRATIVE: CASE EVENT DATE: 201601
